FAERS Safety Report 17104877 (Version 1)
Quarter: 2019Q4

REPORT INFORMATION
  Report Type: Report from Study
  Country: IT (occurrence: IT)
  Receive Date: 20191203
  Receipt Date: 20191203
  Transmission Date: 20200122
  Serious: Yes (Death, Hospitalization)
  Sender: FDA-Public Use
  Company Number: IT-ROCHE-2478299

PATIENT
  Sex: Male
  Weight: 63 kg

DRUGS (7)
  1. DOXORUBICIN HYDROCHLORIDE. [Suspect]
     Active Substance: DOXORUBICIN HYDROCHLORIDE
     Indication: DIFFUSE LARGE B-CELL LYMPHOMA
     Dosage: 375 MG/EV EVERY 3 WEEKS (5 CYCLES)
     Route: 065
  2. PREDNISONE. [Suspect]
     Active Substance: PREDNISONE
     Indication: DIFFUSE LARGE B-CELL LYMPHOMA
     Dosage: 375 MG/EV EVERY 3 WEEKS (5 CYCLES)
     Route: 065
  3. RITUXIMAB. [Suspect]
     Active Substance: RITUXIMAB
     Indication: PRODUCT USED FOR UNKNOWN INDICATION
     Dosage: IN /NOV/2018, HE RECEIVED MOST RECENT DOSE OF RITUXIMAB.
     Route: 041
     Dates: start: 201806
  4. VINCRISTINE SULFATE. [Suspect]
     Active Substance: VINCRISTINE SULFATE
     Indication: DIFFUSE LARGE B-CELL LYMPHOMA
     Dosage: 375 MG/EV EVERY 3 WEEKS (5 CYCLES)
     Route: 065
  5. LENALIDOMIDE [Suspect]
     Active Substance: LENALIDOMIDE
     Indication: PRODUCT USED FOR UNKNOWN INDICATION
     Route: 048
     Dates: start: 20190130, end: 20190219
  6. CYCLOPHOSPHAMIDE. [Suspect]
     Active Substance: CYCLOPHOSPHAMIDE
     Indication: DIFFUSE LARGE B-CELL LYMPHOMA
     Dosage: 375 MG/EV EVERY 3 WEEKS (5 CYCLES)
     Route: 065
  7. TRUXIMA [Suspect]
     Active Substance: RITUXIMAB-ABBS
     Indication: DIFFUSE LARGE B-CELL LYMPHOMA
     Dosage: ON 07/NOV/2018, HE RECEIVED MOST RECENT DOSE OF TRUXIMA.
     Route: 065
     Dates: start: 20180626

REACTIONS (11)
  - Constipation [Unknown]
  - Thrombocytopenia [Recovered/Resolved]
  - Pain [Recovered/Resolved]
  - Pancytopenia [Unknown]
  - Pyrexia [Recovered/Resolved]
  - Asthenia [Unknown]
  - Klebsiella infection [Recovered/Resolved]
  - Hypotension [Recovered/Resolved]
  - Cellulitis [Recovered/Resolved]
  - Blood lactate dehydrogenase increased [Unknown]
  - Dysphagia [Unknown]

NARRATIVE: CASE EVENT DATE: 20181229
